FAERS Safety Report 10255364 (Version 2)
Quarter: 2014Q3

REPORT INFORMATION
  Report Type: Spontaneous
  Country: MX (occurrence: None)
  Receive Date: 20140620
  Receipt Date: 20140714
  Transmission Date: 20150326
  Serious: Yes (Hospitalization, Other)
  Sender: FDA-Public Use
  Company Number: 2014MX010479

PATIENT
  Age: 11 Year
  Sex: Male
  Weight: 35.1 kg

DRUGS (3)
  1. ONICIT [Suspect]
     Active Substance: PALONOSETRON HYDROCHLORIDE
     Indication: PROPHYLAXIS OF NAUSEA AND VOMITING
     Route: 042
     Dates: start: 201311, end: 20140605
  2. VP-16 (ETOPOSIDE) SOLUTION (EXCEPT SYRUP) [Concomitant]
  3. CITARABIN (CYTARABINE) SOLUTION (EXCEPT SYRUP) [Concomitant]

REACTIONS (6)
  - Tachycardia [None]
  - Vomiting [None]
  - Dyspnoea [None]
  - Hyperhidrosis [None]
  - Off label use [None]
  - Anxiety [None]

NARRATIVE: CASE EVENT DATE: 20140605
